FAERS Safety Report 8604878-7 (Version None)
Quarter: 2012Q3

REPORT INFORMATION
  Report Type: 
  Country: None (occurrence: None)
  Receive Date: 20120707
  Receipt Date: 20120723
  Transmission Date: 20120928
  Serious: Yes (Hospitalization)
  Sender: FDA-Public Use
  Company Number: TPA2012A05074

PATIENT
  Sex: Female

DRUGS (1)
  1. ACTOPLUS MET [Suspect]

REACTIONS (1)
  - OBESITY SURGERY [None]
